FAERS Safety Report 4500553-9 (Version None)
Quarter: 2004Q4

REPORT INFORMATION
  Report Type: 
  Country: None (occurrence: None)
  Receive Date: 20041110
  Receipt Date: 20041026
  Transmission Date: 20050328
  Serious: Yes (Hospitalization)
  Sender: FDA-Public Use
  Company Number: 203206

PATIENT
  Age: 54 Year
  Sex: Female
  Weight: 78.9259 kg

DRUGS (4)
  1. AVONEX [Suspect]
     Indication: MULTIPLE SCLEROSIS
     Dosage: 30 MCG QW IM
     Route: 030
     Dates: start: 19970101, end: 20030801
  2. AVONEX [Suspect]
     Indication: MULTIPLE SCLEROSIS
     Dosage: 30 MCG QW IM
     Route: 030
     Dates: start: 20030801
  3. DIAZEPAM [Concomitant]
  4. SYNTHROID [Concomitant]

REACTIONS (16)
  - ACCIDENT [None]
  - ADJUSTMENT DISORDER [None]
  - ARTHRALGIA [None]
  - BALANCE DISORDER [None]
  - DEPRESSION [None]
  - FALL [None]
  - INFLUENZA LIKE ILLNESS [None]
  - INJECTION SITE PAIN [None]
  - JOINT STIFFNESS [None]
  - JOINT SWELLING [None]
  - MUSCLE DISORDER [None]
  - NAUSEA [None]
  - OSTEOARTHRITIS [None]
  - SINUSITIS [None]
  - TREMOR [None]
  - VOMITING [None]
